FAERS Safety Report 8577856-4 (Version None)
Quarter: 2012Q3

REPORT INFORMATION
  Report Type: 
  Country: None (occurrence: None)
  Receive Date: 20120808
  Receipt Date: 20120730
  Transmission Date: 20120928
  Serious: No
  Sender: FDA-Public Use
  Company Number: US-BIOGENIDEC-2012BI028786

PATIENT
  Sex: Male

DRUGS (1)
  1. TYSABRI [Suspect]
     Indication: MULTIPLE SCLEROSIS
     Route: 042
     Dates: start: 20120312

REACTIONS (5)
  - CYSTITIS [None]
  - INCONTINENCE [None]
  - PROSTATIC DISORDER [None]
  - STAPHYLOCOCCAL INFECTION [None]
  - ABNORMAL DREAMS [None]
